FAERS Safety Report 14467982 (Version 4)
Quarter: 2018Q1

REPORT INFORMATION
  Report Type: Spontaneous
  Country: US (occurrence: US)
  Receive Date: 20180131
  Receipt Date: 20180305
  Transmission Date: 20180509
  Serious: No
  Sender: FDA-Public Use
  Company Number: US-PFIZER INC-2018042853

PATIENT
  Age: 90 Year
  Sex: Female

DRUGS (1)
  1. ADVIL [Suspect]
     Active Substance: IBUPROFEN
     Indication: MYALGIA
     Dosage: 1 DF, DAILY

REACTIONS (4)
  - Condition aggravated [Unknown]
  - Pain [Unknown]
  - Product use complaint [Unknown]
  - Pain in extremity [Unknown]
